FAERS Safety Report 8546314-5 (Version None)
Quarter: 2012Q3

REPORT INFORMATION
  Report Type: 
  Country: None (occurrence: None)
  Receive Date: 20120727
  Receipt Date: 20120116
  Transmission Date: 20120928
  Serious: No
  Sender: FDA-Public Use
  Company Number: US-ASTRAZENECA-2011SE75689

PATIENT
  Age: 50 Year
  Sex: Female
  Weight: 99.8 kg

DRUGS (6)
  1. PERCOCET [Concomitant]
     Indication: LIMB OPERATION
     Dosage: 7.5/325 MG
     Dates: start: 20100101
  2. MULTI-VITAMINS [Concomitant]
  3. PERCOCET [Concomitant]
     Indication: SURGERY
     Dosage: 7.5/325 MG
     Dates: start: 20100101
  4. XANAX [Concomitant]
  5. PROZAC [Concomitant]
     Indication: BIPOLAR DISORDER
  6. SEROQUEL [Suspect]
     Indication: SLEEP DISORDER
     Route: 048

REACTIONS (12)
  - INTERVERTEBRAL DISC PROTRUSION [None]
  - BLOOD PRESSURE ABNORMAL [None]
  - BACK DISORDER [None]
  - HYPOCHONDRIASIS [None]
  - SLEEP DISORDER DUE TO GENERAL MEDICAL CONDITION, INSOMNIA TYPE [None]
  - MENTAL IMPAIRMENT [None]
  - OFF LABEL USE [None]
  - NERVE INJURY [None]
  - FEELING ABNORMAL [None]
  - BLOOD CHOLESTEROL INCREASED [None]
  - MENISCUS LESION [None]
  - DRUG ADMINISTRATION ERROR [None]
